FAERS Safety Report 14183567 (Version 1)
Quarter: 2017Q4

REPORT INFORMATION
  Report Type: Spontaneous
  Country: US (occurrence: US)
  Receive Date: 20171113
  Receipt Date: 20171113
  Transmission Date: 20180321
  Serious: No
  Sender: FDA-Public Use
  Company Number: US-AQUA PHARMACEUTICALS-2017AQU000168

PATIENT

DRUGS (1)
  1. VERDESO [Suspect]
     Active Substance: DESONIDE
     Indication: TRANSIENT ACANTHOLYTIC DERMATOSIS
     Dosage: UNK, BID
     Route: 061
     Dates: start: 20170522

REACTIONS (3)
  - Pruritus [Not Recovered/Not Resolved]
  - Erythema [Not Recovered/Not Resolved]
  - Off label use [Unknown]

NARRATIVE: CASE EVENT DATE: 201705
